FAERS Safety Report 26097650 (Version 1)
Quarter: 2025Q4

REPORT INFORMATION
  Report Type: Spontaneous
  Country: JP (occurrence: JP)
  Receive Date: 20251127
  Receipt Date: 20251127
  Transmission Date: 20260117
  Serious: Yes (Death, Other)
  Sender: MALLINCKRODT
  Company Number: JP-MALLINCKRODT-MNK202506433

PATIENT

DRUGS (2)
  1. NITRIC OXIDE [Suspect]
     Active Substance: NITRIC OXIDE
     Indication: Pulmonary hypertension
     Dosage: 5 PPM
     Route: 055
     Dates: start: 20210109, end: 20210109
  2. NITRIC OXIDE [Suspect]
     Active Substance: NITRIC OXIDE
     Dosage: 20 PPM (RESTARTED)
     Route: 055
     Dates: start: 20210110

REACTIONS (3)
  - Death [Fatal]
  - Rebound effect [Recovering/Resolving]
  - Pulmonary hypertension [Recovering/Resolving]
